FAERS Safety Report 7300562 (Version 5)
Quarter: 2012Q4

REPORT INFORMATION
  Report Type: Spontaneous
  Country: US (occurrence: None)
  Receive Date: 20100212
  Receipt Date: 20121009
  Transmission Date: 20130628
  Serious: Yes (Hospitalization)
  Sender: FDA-Public Use
  Company Number: DSU-2010-00403

PATIENT
  Sex: Female
  Weight: 102.06 kg

DRUGS (10)
  1. BENICAR [Suspect]
     Indication: HYPERTENSION
     Route: 048
     Dates: start: 2005, end: 200801
  2. BENICAR [Suspect]
     Indication: HYPERTENSION
     Route: 048
     Dates: start: 200801, end: 2010
  3. BENICAR [Suspect]
     Indication: HYPERTENSION
     Dosage: 40 MG (40 MG, QD), PER ORAL; 20 MG (20 MG,QD), PER ORAL; 40 MG (40 MG, QD), PER ORAL
     Route: 048
     Dates: start: 2010
  4. BENICAR HCT [Suspect]
     Indication: HYPERTENSION
     Dosage: 40/12.5MG (QD), PER ORAL
     Dates: start: 2002, end: 2005
  5. HYDROCHLOROTHIAZIDE [Suspect]
     Indication: HYPERTENSION
     Route: 048
     Dates: start: 2005, end: 200801
  6. HYDROCHLOROTHIAZIDE [Suspect]
     Indication: HYPERTENSION
     Route: 048
     Dates: start: 2008
  7. UNSPECIFIED INGREDIENT [Suspect]
     Indication: PRODUCT USED FOR UNKNOWN INDICATION
     Dates: start: 200909, end: 200909
  8. INSULIN (INSULIN) (INJECTION) (INSULIN) [Concomitant]
  9. ECOTRIN (ACETYLSALICYLIC ACID) (325 MILLIGRAM) (ACETYLSALICYLIC ACID) [Concomitant]
  10. HUMULIN 70/30 (INSULIN HUMAN, INSULIN HUMAN INJECTION, ISOPHANE) [Concomitant]

REACTIONS (11)
  - Abdominal pain upper [None]
  - Diarrhoea [None]
  - Hypotension [None]
  - Transient ischaemic attack [None]
  - Carotid artery occlusion [None]
  - Hypertension [None]
  - Cerebrovascular accident [None]
  - Heart rate decreased [None]
  - Allergy to chemicals [None]
  - Wound [None]
  - Staphylococcal infection [None]
